FAERS Safety Report 9210334 (Version 2)
Quarter: 2016Q1

REPORT INFORMATION
  Report Type: Report from Study
  Country: BR (occurrence: BR)
  Receive Date: 20130404
  Receipt Date: 20160219
  Transmission Date: 20160526
  Serious: Yes (Hospitalization, Other)
  Sender: FDA-Public Use
  Company Number: BR-ROCHE-725109

PATIENT
  Age: 44 Year
  Sex: Female
  Weight: 98 kg

DRUGS (20)
  1. MABTHERA [Suspect]
     Active Substance: RITUXIMAB
     Dosage: DATE OF LAST RITUXIMAB INFUSION: 23/APR/2014
     Route: 042
  2. GLIFAGE [Suspect]
     Active Substance: METFORMIN HYDROCHLORIDE
     Indication: PRODUCT USED FOR UNKNOWN INDICATION
     Route: 065
  3. PARACETAMOL [Concomitant]
     Active Substance: ACETAMINOPHEN
     Route: 065
  4. RANITIDINE [Concomitant]
     Active Substance: RANITIDINE\RANITIDINE HYDROCHLORIDE
     Route: 065
  5. MABTHERA [Suspect]
     Active Substance: RITUXIMAB
     Indication: SYSTEMIC LUPUS ERYTHEMATOSUS
     Dosage: DATES OF SUBSEQUENT DOSE ADMINISTRATIONS OF RITUXIMAB: 16/OCT/2009, 30/OCT/2009 AND JUN/2011
     Route: 042
  6. CODEINE [Concomitant]
     Active Substance: CODEINE
     Route: 065
  7. AZATHIOPRINE. [Concomitant]
     Active Substance: AZATHIOPRINE
     Dosage: 1 TABLET IN THE MORNING AND 1 TABLET AT NIGHT
     Route: 065
     Dates: start: 2009, end: 20110304
  8. LOSARTAN. [Concomitant]
     Active Substance: LOSARTAN
     Indication: HYPERTENSION
     Route: 065
  9. CORTISONE [Concomitant]
     Active Substance: CORTISONE\HYDROCORTISONE
     Route: 065
  10. AMITRIPTILINA [Concomitant]
     Active Substance: AMITRIPTYLINE HYDROCHLORIDE
     Route: 065
  11. ACETYLSALICYLIC ACID [Concomitant]
     Active Substance: ASPIRIN
     Route: 065
  12. TYLENOL [Concomitant]
     Active Substance: ACETAMINOPHEN
     Indication: PAIN
     Route: 065
  13. TYLENOL [Concomitant]
     Active Substance: ACETAMINOPHEN
     Route: 065
  14. LOSARTAN. [Concomitant]
     Active Substance: LOSARTAN
     Route: 065
  15. ENALAPRIL [Concomitant]
     Active Substance: ENALAPRIL
     Indication: HYPERTENSION
     Route: 065
  16. OMEPRAZOLE. [Concomitant]
     Active Substance: OMEPRAZOLE
     Dosage: 1 TABLET IN THE MORNING (DAILY)
     Route: 065
  17. MABTHERA [Suspect]
     Active Substance: RITUXIMAB
     Indication: RHEUMATOID ARTHRITIS
     Dosage: FIRST INFUSION OF LATEST CYCLE
     Route: 042
  18. LOSARTAN. [Concomitant]
     Active Substance: LOSARTAN
     Dosage: 1 TABLET IN THE MORNING AND 1 TABLET AT NIGHT
     Route: 065
  19. ENALAPRIL [Concomitant]
     Active Substance: ENALAPRIL
     Route: 065
  20. HYDROCHLOROTHIAZIDE. [Concomitant]
     Active Substance: HYDROCHLOROTHIAZIDE
     Route: 065

REACTIONS (23)
  - Pruritus [Unknown]
  - Pain [Recovered/Resolved]
  - Dizziness [Not Recovered/Not Resolved]
  - Wound [Unknown]
  - Arthralgia [Recovered/Resolved]
  - Glucose tolerance impaired [Unknown]
  - Inappropriate schedule of drug administration [Unknown]
  - Dyspepsia [Not Recovered/Not Resolved]
  - Vision blurred [Unknown]
  - Dry eye [Not Recovered/Not Resolved]
  - Dengue fever [Recovering/Resolving]
  - Proteinuria [Not Recovered/Not Resolved]
  - Pyrexia [Unknown]
  - Feeling hot [Unknown]
  - Malaise [Not Recovered/Not Resolved]
  - Headache [Unknown]
  - Peripheral swelling [Unknown]
  - Muscular weakness [Recovered/Resolved]
  - Burning sensation [Not Recovered/Not Resolved]
  - Lower extremity mass [Unknown]
  - Photosensitivity reaction [Not Recovered/Not Resolved]
  - Somnolence [Recovered/Resolved]
  - Myalgia [Unknown]

NARRATIVE: CASE EVENT DATE: 2010
